FAERS Safety Report 4937071-X (Version None)
Quarter: 2006Q1

REPORT INFORMATION
  Report Type: 
  Country: None (occurrence: None)
  Receive Date: 20060309
  Receipt Date: 20051207
  Transmission Date: 20060701
  Serious: Yes (Hospitalization, Disabling)
  Sender: FDA-Public Use
  Company Number: US-MERCK-0512USA01669

PATIENT
  Age: 43 Year
  Sex: Male
  Weight: 150 kg

DRUGS (3)
  1. VIOXX [Suspect]
     Indication: INFLAMMATION
     Route: 048
     Dates: start: 20020101, end: 20020101
  2. VIOXX [Suspect]
     Indication: RENAL DISORDER
     Route: 048
     Dates: start: 20020101, end: 20020101
  3. ADVIL [Concomitant]
     Route: 065

REACTIONS (4)
  - CARDIAC DISORDER [None]
  - DEPRESSION [None]
  - MYOCARDIAL INFARCTION [None]
  - SLEEP DISORDER [None]
